FAERS Safety Report 20337334 (Version 2)
Quarter: 2024Q1

REPORT INFORMATION
  Report Type: Spontaneous
  Country: US (occurrence: US)
  Receive Date: 20220114
  Receipt Date: 20240211
  Transmission Date: 20240409
  Serious: No
  Sender: FDA-Public Use
  Company Number: US-SA-SAC20220106000162

PATIENT
  Sex: Male

DRUGS (3)
  1. DUPIXENT [Suspect]
     Active Substance: DUPILUMAB
     Indication: Dermatitis atopic
     Dosage: 300 MG, QOW
     Route: 058
     Dates: start: 20191002
  2. METHYLPHENIDATE [Concomitant]
     Active Substance: METHYLPHENIDATE
     Dosage: 20 MG
  3. ESCITALOPRAM [Concomitant]
     Active Substance: ESCITALOPRAM OXALATE

REACTIONS (7)
  - Depression [Not Recovered/Not Resolved]
  - Depressed mood [Not Recovered/Not Resolved]
  - Discomfort [Unknown]
  - Dermatitis atopic [Not Recovered/Not Resolved]
  - Rash [Unknown]
  - Eye irritation [Unknown]
  - Sleep disorder due to a general medical condition [Unknown]
